FAERS Safety Report 7472789-9 (Version None)
Quarter: 2011Q2

REPORT INFORMATION
  Report Type: 
  Country: None (occurrence: None)
  Receive Date: 20110511
  Receipt Date: 20110112
  Transmission Date: 20111010
  Serious: Yes (Other)
  Sender: FDA-Public Use
  Company Number: US-BAYER-201037398NA

PATIENT
  Age: 24 Year
  Sex: Female
  Weight: 57 kg

DRUGS (6)
  1. YAZ [Suspect]
     Indication: CONTRACEPTION
     Dosage: UNK UNK, UNK
     Route: 048
     Dates: start: 20070101, end: 20100101
  2. YAZ [Suspect]
     Dosage: UNK
     Dates: start: 20060320, end: 20060521
  3. YASMIN [Suspect]
     Dosage: UNK
     Dates: start: 20050824, end: 20060501
  4. YASMIN [Suspect]
     Dosage: UNK
     Dates: start: 20060815, end: 20071210
  5. NSAID'S [Concomitant]
  6. YASMIN [Suspect]
     Indication: CONTRACEPTION
     Dosage: UNK UNK, UNK
     Route: 048
     Dates: start: 20020201, end: 20071201

REACTIONS (5)
  - GALLBLADDER INJURY [None]
  - EMOTIONAL DISTRESS [None]
  - PAIN [None]
  - CHOLELITHIASIS [None]
  - SCAR [None]
